FAERS Safety Report 7809841-1 (Version None)
Quarter: 2011Q4

REPORT INFORMATION
  Report Type: 
  Country: None (occurrence: None)
  Receive Date: 20111007
  Receipt Date: 20110929
  Transmission Date: 20120403
  Serious: Yes (Hospitalization)
  Sender: FDA-Public Use
  Company Number: WAES 1109USA00472

PATIENT
  Age: 48 Year
  Sex: Male

DRUGS (11)
  1. XELODA [Suspect]
     Indication: GASTRIC CANCER
     Dosage: 1600 MG/BID PO ; 15600 MG/BID PO ; 1200 MG/BID PO
     Route: 048
     Dates: start: 20110917
  2. XELODA [Suspect]
     Indication: GASTRIC CANCER
     Dosage: 1600 MG/BID PO ; 15600 MG/BID PO ; 1200 MG/BID PO
     Route: 048
     Dates: start: 20110729, end: 20110811
  3. XELODA [Suspect]
     Indication: GASTRIC CANCER
     Dosage: 1600 MG/BID PO ; 15600 MG/BID PO ; 1200 MG/BID PO
     Route: 048
     Dates: start: 20110820, end: 20110902
  4. CISPLATIN [Suspect]
     Indication: GASTRIC CANCER
     Dosage: 98.4 MG/DAILY IV ; 98.4 MG/DAILY IV ; 94.8 MG/DAILY IV
     Route: 042
     Dates: start: 20110820, end: 20110820
  5. CISPLATIN [Suspect]
     Indication: GASTRIC CANCER
     Dosage: 98.4 MG/DAILY IV ; 98.4 MG/DAILY IV ; 94.8 MG/DAILY IV
     Route: 042
     Dates: start: 20110917
  6. CISPLATIN [Suspect]
     Indication: GASTRIC CANCER
     Dosage: 98.4 MG/DAILY IV ; 98.4 MG/DAILY IV ; 94.8 MG/DAILY IV
     Route: 042
     Dates: start: 20110729, end: 20110729
  7. ULCERMIN [Concomitant]
  8. ZOLINZA [Suspect]
     Indication: GASTRIC CANCER
     Dosage: 400 MG/DAILY PO ;400 MG/DAILY PO ; 300 MG/DAILY PO
     Route: 048
     Dates: start: 20110917
  9. ZOLINZA [Suspect]
     Indication: GASTRIC CANCER
     Dosage: 400 MG/DAILY PO ;400 MG/DAILY PO ; 300 MG/DAILY PO
     Route: 048
     Dates: start: 20110820, end: 20110902
  10. ZOLINZA [Suspect]
     Indication: GASTRIC CANCER
     Dosage: 400 MG/DAILY PO ;400 MG/DAILY PO ; 300 MG/DAILY PO
     Route: 048
     Dates: start: 20110729, end: 20110811
  11. SODIUM BICARBONATE [Concomitant]

REACTIONS (4)
  - DECREASED APPETITE [None]
  - HAEMOGLOBIN DECREASED [None]
  - FATIGUE [None]
  - ENTERITIS [None]
